FAERS Safety Report 25865262 (Version 1)
Quarter: 2025Q3

REPORT INFORMATION
  Report Type: Spontaneous
  Country: US (occurrence: US)
  Receive Date: 20250930
  Receipt Date: 20250930
  Transmission Date: 20251021
  Serious: No
  Sender: ELI LILLY AND COMPANY
  Company Number: US-ELI_LILLY_AND_COMPANY-US202509014409

PATIENT
  Age: 79 Year
  Sex: Male

DRUGS (2)
  1. KISUNLA [Suspect]
     Active Substance: DONANEMAB-AZBT
     Indication: Dementia Alzheimer^s type
     Route: 065
     Dates: start: 20250813
  2. KISUNLA [Suspect]
     Active Substance: DONANEMAB-AZBT
     Route: 065
     Dates: start: 20250910

REACTIONS (1)
  - Abdominal pain upper [Not Recovered/Not Resolved]

NARRATIVE: CASE EVENT DATE: 20250912
